FAERS Safety Report 8015255-4 (Version None)
Quarter: 2011Q4

REPORT INFORMATION
  Report Type: 
  Country: None (occurrence: None)
  Receive Date: 20111230
  Receipt Date: 20111221
  Transmission Date: 20120403
  Serious: No
  Sender: FDA-Public Use
  Company Number: US-BIOGENIDEC-2011BI048188

PATIENT
  Age: 53 Year
  Sex: Female

DRUGS (6)
  1. UNSPECIFIED MEDICATION [Concomitant]
     Indication: PRODUCT USED FOR UNKNOWN INDICATION
  2. AVONEX [Suspect]
     Indication: MULTIPLE SCLEROSIS
     Route: 030
     Dates: start: 20080901
  3. UNSPECIFIED MEDICATION [Concomitant]
  4. UNSPECIFIED MEDICINE [Concomitant]
     Indication: PRODUCT USED FOR UNKNOWN INDICATION
  5. AVONEX [Suspect]
     Route: 030
     Dates: start: 20080404
  6. UNSPECIFIED MEDICINE [Concomitant]

REACTIONS (1)
  - PNEUMONIA [None]
